FAERS Safety Report 6748656-2 (Version None)
Quarter: 2010Q2

REPORT INFORMATION
  Report Type: 
  Country: None (occurrence: None)
  Receive Date: 20100601
  Receipt Date: 20100520
  Transmission Date: 20101027
  Serious: Yes (Other)
  Sender: FDA-Public Use
  Company Number: FR-JNJFOC-20100407028

PATIENT
  Age: 50 Year
  Sex: Female
  Weight: 62 kg

DRUGS (6)
  1. REMICADE [Suspect]
     Indication: ANKYLOSING SPONDYLITIS
     Route: 042
  2. METHOTREXATE [Concomitant]
     Indication: SPONDYLOARTHROPATHY
     Route: 048
  3. PARACETAMOL [Concomitant]
     Indication: SPONDYLOARTHROPATHY
     Route: 048
  4. APRANAX [Concomitant]
     Indication: SPONDYLOARTHROPATHY
  5. SPECIAFOLDINE [Concomitant]
     Indication: SPONDYLOARTHROPATHY
     Route: 048
  6. AMLOR [Concomitant]
     Indication: HYPERTENSION
     Route: 048

REACTIONS (1)
  - MENINGIOMA [None]
